FAERS Safety Report 9534744 (Version 2)
Quarter: 2013Q3

REPORT INFORMATION
  Report Type: Spontaneous
  Country: US (occurrence: US)
  Receive Date: 20130918
  Receipt Date: 20130918
  Transmission Date: 20140515
  Serious: No
  Sender: FDA-Public Use
  Company Number: US-PURDUE-USA-2011-0077337

PATIENT
  Sex: Female

DRUGS (1)
  1. BUTRANS [Suspect]
     Indication: PAIN
     Dosage: 10 MG, Q1H
     Route: 062
     Dates: start: 20110310, end: 20111015

REACTIONS (3)
  - Application site rash [Unknown]
  - Drug hypersensitivity [Recovered/Resolved]
  - Dermatitis contact [Recovered/Resolved]
